FAERS Safety Report 23594237 (Version 1)
Quarter: 2024Q1

REPORT INFORMATION
  Report Type: Spontaneous
  Country: CA (occurrence: None)
  Receive Date: 20240305
  Receipt Date: 20240305
  Transmission Date: 20240410
  Serious: Yes (Hospitalization, Other)
  Sender: FDA-Public Use
  Company Number: 2024A051351

PATIENT
  Sex: Male

DRUGS (50)
  1. QUETIAPINE FUMARATE [Suspect]
     Active Substance: QUETIAPINE FUMARATE
     Indication: Schizophrenia
     Dosage: 600.0MG UNKNOWN
     Route: 048
  2. AMISULPRIDE [Suspect]
     Active Substance: AMISULPRIDE
     Indication: Schizophrenia
     Dosage: 1200.0MG UNKNOWN
  3. ARIPIPRAZOLE [Suspect]
     Active Substance: ARIPIPRAZOLE
     Indication: Schizophrenia
     Dosage: 80.0MG UNKNOWN
  4. ARIPIPRAZOLE [Suspect]
     Active Substance: ARIPIPRAZOLE
     Indication: Schizophrenia
     Dosage: 300.0MG UNKNOWN
  5. CLOMIPRAMINE [Suspect]
     Active Substance: CLOMIPRAMINE
     Indication: Schizophrenia
     Dosage: 250.0MG UNKNOWN
  6. CLOZAPINE [Suspect]
     Active Substance: CLOZAPINE
     Indication: Schizophrenia
     Dosage: 350.0MG UNKNOWN
  7. FLUOXETINE HYDROCHLORIDE [Suspect]
     Active Substance: FLUOXETINE HYDROCHLORIDE
     Indication: Schizophrenia
     Dosage: 80.0MG UNKNOWN
  8. FLUPENTIXOL [Suspect]
     Active Substance: FLUPENTIXOL
     Indication: Schizophrenia
     Dosage: 6.0MG UNKNOWN
  9. GABAPENTIN [Suspect]
     Active Substance: GABAPENTIN
     Indication: Schizophrenia
     Dosage: 1800.0MG UNKNOWN
  10. GABAPENTIN [Suspect]
     Active Substance: GABAPENTIN
     Indication: Product used for unknown indication
     Dosage: 1800.0MG UNKNOWN
  11. GABAPENTIN [Suspect]
     Active Substance: GABAPENTIN
     Indication: Schizophrenia
     Dosage: 600.0MG UNKNOWN
  12. GABAPENTIN [Suspect]
     Active Substance: GABAPENTIN
     Indication: Product used for unknown indication
     Dosage: 600.0MG UNKNOWN
  13. GABAPENTIN [Suspect]
     Active Substance: GABAPENTIN
     Indication: Schizophrenia
     Dosage: 1600.0MG UNKNOWN
  14. GABAPENTIN [Suspect]
     Active Substance: GABAPENTIN
     Indication: Product used for unknown indication
     Dosage: 1600.0MG UNKNOWN
  15. HALOPERIDOL DECANOATE [Suspect]
     Active Substance: HALOPERIDOL DECANOATE
     Indication: Schizophrenia
     Dosage: 5.0MG UNKNOWN
     Route: 030
  16. HALOPERIDOL DECANOATE [Suspect]
     Active Substance: HALOPERIDOL DECANOATE
     Indication: Product used for unknown indication
     Dosage: 5.0MG UNKNOWN
     Route: 030
  17. HALOPERIDOL DECANOATE [Suspect]
     Active Substance: HALOPERIDOL DECANOATE
     Indication: Schizophrenia
     Dosage: 6.0MG UNKNOWN
     Route: 030
  18. HALOPERIDOL DECANOATE [Suspect]
     Active Substance: HALOPERIDOL DECANOATE
     Indication: Product used for unknown indication
     Dosage: 6.0MG UNKNOWN
     Route: 030
  19. LITHIUM CARBONATE [Suspect]
     Active Substance: LITHIUM CARBONATE
     Indication: Schizophrenia
     Dosage: 1800.0MG UNKNOWN
  20. LITHIUM CARBONATE [Suspect]
     Active Substance: LITHIUM CARBONATE
     Indication: Product used for unknown indication
     Dosage: 1800.0MG UNKNOWN
  21. LITHIUM CARBONATE [Suspect]
     Active Substance: LITHIUM CARBONATE
     Indication: Schizophrenia
     Dosage: 1500.0MG UNKNOWN
  22. LITHIUM CARBONATE [Suspect]
     Active Substance: LITHIUM CARBONATE
     Indication: Product used for unknown indication
     Dosage: 1500.0MG UNKNOWN
  23. LITHIUM CARBONATE [Suspect]
     Active Substance: LITHIUM CARBONATE
     Indication: Schizophrenia
     Dosage: UNKNOWN
  24. LITHIUM CARBONATE [Suspect]
     Active Substance: LITHIUM CARBONATE
     Indication: Product used for unknown indication
     Dosage: UNKNOWN
  25. LITHIUM CARBONATE [Suspect]
     Active Substance: LITHIUM CARBONATE
     Indication: Schizophrenia
     Dosage: 1050.0MG UNKNOWN
  26. LITHIUM CARBONATE [Suspect]
     Active Substance: LITHIUM CARBONATE
     Indication: Product used for unknown indication
     Dosage: 1050.0MG UNKNOWN
  27. LOXAPINE SUCCINATE [Suspect]
     Active Substance: LOXAPINE SUCCINATE
     Indication: Schizophrenia
     Dosage: 75.0MG UNKNOWN
  28. LOXAPINE SUCCINATE [Suspect]
     Active Substance: LOXAPINE SUCCINATE
     Indication: Product used for unknown indication
     Dosage: 75.0MG UNKNOWN
  29. LOXAPINE SUCCINATE [Suspect]
     Active Substance: LOXAPINE SUCCINATE
     Indication: Schizophrenia
     Dosage: 200.0MG UNKNOWN
  30. LOXAPINE SUCCINATE [Suspect]
     Active Substance: LOXAPINE SUCCINATE
     Indication: Product used for unknown indication
     Dosage: 200.0MG UNKNOWN
  31. LOXAPINE SUCCINATE [Suspect]
     Active Substance: LOXAPINE SUCCINATE
     Indication: Schizophrenia
     Dosage: 50.0MG UNKNOWN
  32. LOXAPINE SUCCINATE [Suspect]
     Active Substance: LOXAPINE SUCCINATE
     Indication: Product used for unknown indication
     Dosage: 50.0MG UNKNOWN
  33. OLANZAPINE [Suspect]
     Active Substance: OLANZAPINE
     Indication: Schizophrenia
     Dosage: 15.0MG UNKNOWN
  34. OLANZAPINE [Suspect]
     Active Substance: OLANZAPINE
     Indication: Product used for unknown indication
     Dosage: 15.0MG UNKNOWN
  35. OLANZAPINE [Suspect]
     Active Substance: OLANZAPINE
     Indication: Schizophrenia
     Dosage: 40.0MG UNKNOWN
  36. OLANZAPINE [Suspect]
     Active Substance: OLANZAPINE
     Indication: Product used for unknown indication
     Dosage: 40.0MG UNKNOWN
  37. OLANZAPINE [Suspect]
     Active Substance: OLANZAPINE
     Indication: Schizophrenia
     Dosage: 20.0MG UNKNOWN
  38. OLANZAPINE [Suspect]
     Active Substance: OLANZAPINE
     Indication: Product used for unknown indication
     Dosage: 20.0MG UNKNOWN
  39. PERPHENAZINE [Suspect]
     Active Substance: PERPHENAZINE
     Indication: Schizophrenia
     Dosage: 32.0MG UNKNOWN
  40. RISPERIDONE [Suspect]
     Active Substance: RISPERIDONE
     Indication: Schizophrenia
     Dosage: 8.0MG UNKNOWN
  41. RISPERIDONE [Suspect]
     Active Substance: RISPERIDONE
     Indication: Product used for unknown indication
     Dosage: 8.0MG UNKNOWN
  42. RISPERIDONE [Suspect]
     Active Substance: RISPERIDONE
     Indication: Schizophrenia
     Dosage: 4.0MG UNKNOWN
  43. RISPERIDONE [Suspect]
     Active Substance: RISPERIDONE
     Indication: Product used for unknown indication
     Dosage: 4.0MG UNKNOWN
  44. RISPERIDONE [Suspect]
     Active Substance: RISPERIDONE
     Indication: Schizophrenia
     Dosage: 3.0MG UNKNOWN
  45. RISPERIDONE [Suspect]
     Active Substance: RISPERIDONE
     Indication: Product used for unknown indication
     Dosage: 3.0MG UNKNOWN
  46. SAPHRIS [Suspect]
     Active Substance: ASENAPINE MALEATE
     Indication: Schizophrenia
  47. THIORIDAZINE [Suspect]
     Active Substance: THIORIDAZINE
     Indication: Schizophrenia
     Route: 048
  48. TRIFLUOPERAZINE [Suspect]
     Active Substance: TRIFLUOPERAZINE HYDROCHLORIDE
     Indication: Schizophrenia
     Dosage: 50.0MG UNKNOWN
  49. ZIPRASIDONE HYDROCHLORIDE [Suspect]
     Active Substance: ZIPRASIDONE HYDROCHLORIDE
     Indication: Schizophrenia
     Dosage: 100.0MG UNKNOWN
  50. VALPROATE SODIUM [Concomitant]
     Active Substance: VALPROATE SODIUM
     Indication: Schizophrenia

REACTIONS (13)
  - Akathisia [Unknown]
  - Antipsychotic drug level below therapeutic [Unknown]
  - Disinhibition [Unknown]
  - Euphoric mood [Unknown]
  - Increased appetite [Unknown]
  - Leukopenia [Unknown]
  - Obsessive-compulsive disorder [Unknown]
  - Suicide attempt [Unknown]
  - Toxicity to various agents [Unknown]
  - Weight increased [Unknown]
  - Drug ineffective [Unknown]
  - Therapeutic product effect incomplete [Unknown]
  - Therapeutic product effect variable [Unknown]
